FAERS Safety Report 19374751 (Version 1)
Quarter: 2021Q2

REPORT INFORMATION
  Report Type: Spontaneous
  Country: US (occurrence: US)
  Receive Date: 20210604
  Receipt Date: 20210604
  Transmission Date: 20210717
  Serious: No
  Sender: FDA-Public Use
  Company Number: US-009507513-2106USA000697

PATIENT
  Age: 47 Year
  Sex: Female

DRUGS (2)
  1. MULTIVITAMINUM [Concomitant]
     Active Substance: VITAMINS
  2. KEYTRUDA [Suspect]
     Active Substance: PEMBROLIZUMAB
     Indication: NEOPLASM MALIGNANT
     Dosage: ROUTE: INFUSIONS
     Dates: start: 20210520

REACTIONS (2)
  - Myalgia [Not Recovered/Not Resolved]
  - Back pain [Not Recovered/Not Resolved]

NARRATIVE: CASE EVENT DATE: 20210525
